FAERS Safety Report 6993579-7 (Version None)
Quarter: 2010Q3

REPORT INFORMATION
  Report Type: 
  Country: None (occurrence: None)
  Receive Date: 20100917
  Receipt Date: 20100907
  Transmission Date: 20110219
  Serious: Yes (Other)
  Sender: FDA-Public Use
  Company Number: PHHY2010US59334

PATIENT
  Sex: Male

DRUGS (1)
  1. GLEEVEC [Suspect]
     Indication: EOSINOPHILIA
     Dosage: 600 MG, QD
     Route: 048
     Dates: start: 20040101, end: 20100701

REACTIONS (2)
  - FATIGUE [None]
  - NEPHROLITHIASIS [None]
